FAERS Safety Report 6049528-1 (Version None)
Quarter: 2009Q1

REPORT INFORMATION
  Report Type: 
  Country: None (occurrence: None)
  Receive Date: 20090121
  Receipt Date: 20090101
  Transmission Date: 20090719
  Serious: Yes (Hospitalization)
  Sender: FDA-Public Use
  Company Number: 08P-036-0492475-00

PATIENT
  Age: 2 Month
  Sex: Male

DRUGS (6)
  1. SYNAGIS [Suspect]
     Indication: PROPHYLAXIS
     Dosage: (50 MG, ONCE) INTRAMUSCULAR
     Route: 030
     Dates: start: 20080805, end: 20080805
  2. SYNAGIS [Suspect]
     Indication: RESPIRATORY SYNCYTIAL VIRUS INFECTION
     Dosage: (50 MG, ONCE) INTRAMUSCULAR
     Route: 030
     Dates: start: 20080805, end: 20080805
  3. SYNAGIS [Suspect]
     Indication: PROPHYLAXIS
     Dosage: (50 MG, ONCE) INTRAMUSCULAR
     Route: 030
     Dates: start: 20080910, end: 20080910
  4. SYNAGIS [Suspect]
     Indication: RESPIRATORY SYNCYTIAL VIRUS INFECTION
     Dosage: (50 MG, ONCE) INTRAMUSCULAR
     Route: 030
     Dates: start: 20080910, end: 20080910
  5. SYNAGIS [Suspect]
     Indication: PROPHYLAXIS
     Dosage: (50 MG, ONCE) INTRAMUSCULAR
     Route: 030
     Dates: end: 20080916
  6. SYNAGIS [Suspect]
     Indication: RESPIRATORY SYNCYTIAL VIRUS INFECTION
     Dosage: (50 MG, ONCE) INTRAMUSCULAR
     Route: 030
     Dates: end: 20080916

REACTIONS (3)
  - BRONCHITIS [None]
  - DECREASED APPETITE [None]
  - RESPIRATORY RATE INCREASED [None]
